FAERS Safety Report 8087555-3 (Version None)
Quarter: 2012Q1

REPORT INFORMATION
  Report Type: 
  Country: None (occurrence: None)
  Receive Date: 20120128
  Receipt Date: 20110524
  Transmission Date: 20120608
  Serious: No
  Sender: FDA-Public Use
  Company Number: US-ABBOTT-11P-163-0728191-00

PATIENT
  Sex: Male
  Weight: 97.61 kg

DRUGS (3)
  1. UNKNOWN CREAM [Concomitant]
     Indication: PSORIASIS
     Route: 061
     Dates: start: 20050101
  2. IBUPROFEN [Concomitant]
     Indication: PAIN
  3. HUMIRA [Suspect]
     Indication: PSORIASIS
     Route: 058
     Dates: start: 20110423

REACTIONS (3)
  - CONSTIPATION [None]
  - JOINT STIFFNESS [None]
  - ANXIETY [None]
